FAERS Safety Report 4638684-5 (Version None)
Quarter: 2005Q2

REPORT INFORMATION
  Report Type: 
  Country: None (occurrence: None)
  Receive Date: 20050418
  Receipt Date: 20050418
  Transmission Date: 20051028
  Serious: Yes (Other)
  Sender: FDA-Public Use
  Company Number: None

PATIENT
  Age: 70 Year
  Sex: Male
  Weight: 100 kg

DRUGS (2)
  1. LOVASTATIN [Suspect]
     Indication: HYPERLIPIDAEMIA
     Dosage: 40 MG PO DAILY
     Route: 048
     Dates: start: 20040830, end: 20041220
  2. GEMFIBROZIL [Suspect]
     Indication: HYPERLIPIDAEMIA
     Dosage: 600 MG PO BID
     Route: 048
     Dates: start: 20040713, end: 20041220

REACTIONS (3)
  - BLOOD CREATINE PHOSPHOKINASE INCREASED [None]
  - MEDICATION ERROR [None]
  - MYALGIA [None]
